FAERS Safety Report 13601382 (Version 2)
Quarter: 2017Q2

REPORT INFORMATION
  Report Type: Spontaneous
  Country: US (occurrence: US)
  Receive Date: 20170601
  Receipt Date: 20170613
  Transmission Date: 20170830
  Serious: Yes (Other)
  Sender: FDA-Public Use
  Company Number: US-GLAXOSMITHKLINE-US2017082809

PATIENT
  Age: 14 Year
  Sex: Female

DRUGS (1)
  1. VENTOLIN HFA [Suspect]
     Active Substance: ALBUTEROL SULFATE
     Indication: ASTHMA
     Dosage: UNK UNK, Z
     Route: 055
     Dates: start: 201508

REACTIONS (3)
  - Product quality issue [Unknown]
  - Prescribed overdose [Unknown]
  - Choking [Recovered/Resolved]

NARRATIVE: CASE EVENT DATE: 201705
